FAERS Safety Report 10538047 (Version 3)
Quarter: 2015Q1

REPORT INFORMATION
  Report Type: Spontaneous
  Country: US (occurrence: US)
  Receive Date: 20141023
  Receipt Date: 20150327
  Transmission Date: 20150720
  Serious: No
  Sender: FDA-Public Use
  Company Number: US-009507513-1410USA010381

PATIENT
  Sex: Male
  Weight: 76.64 kg

DRUGS (1)
  1. PROPECIA [Suspect]
     Active Substance: FINASTERIDE
     Indication: ALOPECIA
     Dosage: 1 MG, QD
     Route: 048
     Dates: start: 200504, end: 201311

REACTIONS (20)
  - Hypertension [Unknown]
  - Epididymitis [Unknown]
  - Testicular pain [Unknown]
  - Libido decreased [Unknown]
  - Cognitive disorder [Not Recovered/Not Resolved]
  - Genital pain [Unknown]
  - Depression [Not Recovered/Not Resolved]
  - Injury [Unknown]
  - Orchitis [Unknown]
  - Nocturia [Unknown]
  - Emotional distress [Not Recovered/Not Resolved]
  - Anxiety [Not Recovered/Not Resolved]
  - Lethargy [Not Recovered/Not Resolved]
  - Urinary hesitation [Unknown]
  - Hydrocele [Unknown]
  - Erectile dysfunction [Not Recovered/Not Resolved]
  - Quality of life decreased [Not Recovered/Not Resolved]
  - Male orgasmic disorder [Unknown]
  - Feeling abnormal [Not Recovered/Not Resolved]
  - Sexual dysfunction [Not Recovered/Not Resolved]

NARRATIVE: CASE EVENT DATE: 2011
